FAERS Safety Report 24218417 (Version 3)
Quarter: 2024Q4

REPORT INFORMATION
  Report Type: Report from Study
  Country: US (occurrence: US)
  Receive Date: 20240816
  Receipt Date: 20241111
  Transmission Date: 20250114
  Serious: Yes (Hospitalization)
  Sender: ABBVIE
  Company Number: US-ABBVIE-5878910

PATIENT
  Age: 60 Year
  Sex: Female

DRUGS (6)
  1. SKYRIZI [Suspect]
     Active Substance: RISANKIZUMAB-RZAA
     Indication: Psoriasis
     Dosage: WEEK 12, 360MG/2.4M
     Route: 058
     Dates: start: 20240221, end: 202405
  2. SKYRIZI [Suspect]
     Active Substance: RISANKIZUMAB-RZAA
     Indication: Crohn^s disease
     Dosage: FORM STRENGTH: 360MG/2.4M
     Route: 058
     Dates: start: 20240817
  3. SKYRIZI [Suspect]
     Active Substance: RISANKIZUMAB-RZAA
     Dosage: 360MG/2.4M
     Route: 058
     Dates: start: 202407, end: 202407
  4. SKYRIZI [Suspect]
     Active Substance: RISANKIZUMAB-RZAA
     Indication: Crohn^s disease
     Dosage: WEEK 0
     Route: 042
     Dates: start: 202402, end: 202402
  5. SKYRIZI [Suspect]
     Active Substance: RISANKIZUMAB-RZAA
     Indication: Crohn^s disease
     Dosage: WEEK 4?FIRST/LAST ADMIN DATE: 2024
     Route: 042
  6. SKYRIZI [Suspect]
     Active Substance: RISANKIZUMAB-RZAA
     Indication: Crohn^s disease
     Dosage: WEEK 8
     Route: 042
     Dates: start: 20240414, end: 20240414

REACTIONS (29)
  - Transient ischaemic attack [Unknown]
  - White matter lesion [Not Recovered/Not Resolved]
  - Facial paralysis [Unknown]
  - Vaccination site infection [Unknown]
  - Cardiac valve disease [Unknown]
  - Cerebral disorder [Unknown]
  - Faeces discoloured [Unknown]
  - Arthralgia [Recovering/Resolving]
  - Peripheral swelling [Recovering/Resolving]
  - Musculoskeletal stiffness [Recovering/Resolving]
  - Gait inability [Recovering/Resolving]
  - Anaemia [Unknown]
  - Vitamin B12 decreased [Unknown]
  - Injection site erythema [Recovered/Resolved]
  - Thinking abnormal [Unknown]
  - Injection site pain [Recovered/Resolved]
  - Injection site warmth [Recovered/Resolved]
  - Frequent bowel movements [Unknown]
  - Insomnia [Unknown]
  - Abdominal distension [Unknown]
  - Abdominal pain [Unknown]
  - Asthenia [Unknown]
  - Mobility decreased [Recovered/Resolved]
  - Device issue [Unknown]
  - Fatigue [Unknown]
  - Muscular weakness [Unknown]
  - Memory impairment [Not Recovered/Not Resolved]
  - Haemorrhoidal haemorrhage [Unknown]
  - Fall [Not Recovered/Not Resolved]

NARRATIVE: CASE EVENT DATE: 20240101
